FAERS Safety Report 7267428-6 (Version None)
Quarter: 2011Q1

REPORT INFORMATION
  Report Type: 
  Country: None (occurrence: None)
  Receive Date: 20110201
  Receipt Date: 20110120
  Transmission Date: 20110831
  Serious: Yes (Hospitalization)
  Sender: FDA-Public Use
  Company Number: CZ-SANOFI-AVENTIS-2011SA003712

PATIENT
  Age: 78 Year
  Sex: Female

DRUGS (11)
  1. RANITAL [Concomitant]
     Route: 048
  2. MULTAQ [Suspect]
     Route: 048
     Dates: start: 20110103, end: 20110108
  3. GLUCOPHAGE [Concomitant]
     Route: 048
  4. DIAPREL [Concomitant]
     Route: 048
  5. GODASAL [Concomitant]
     Route: 048
  6. ATORVASTATIN CALCIUM [Concomitant]
     Route: 048
  7. FRAXIPARIN [Concomitant]
     Route: 058
  8. LOZAP /CZE/ [Concomitant]
     Route: 048
  9. AMIODARONE [Concomitant]
     Dates: start: 20100101
  10. OFLOXACIN [Concomitant]
     Route: 048
     Dates: start: 20110101
  11. HUMULIN R [Concomitant]
     Route: 058

REACTIONS (6)
  - PRURITUS [None]
  - ABDOMINAL PAIN [None]
  - HEPATIC ENZYME INCREASED [None]
  - DYSPNOEA [None]
  - SINUS ARREST [None]
  - BRADYCARDIA [None]
